FAERS Safety Report 10949277 (Version 1)
Quarter: 2015Q1

REPORT INFORMATION
  Report Type: Spontaneous
  Country: US (occurrence: None)
  Receive Date: 20150323
  Receipt Date: 20150323
  Transmission Date: 20150721
  Serious: Yes (Hospitalization, Other)
  Sender: FDA-Public Use
  Company Number: None

PATIENT
  Age: 70 Year
  Sex: Male

DRUGS (14)
  1. PREDNISONE PAK [Concomitant]
  2. GLIPIZIDE TAB [Concomitant]
  3. LUPRON DEPOT INJ [Concomitant]
  4. NOVOLOG MIX INJ [Concomitant]
  5. LOSARTAN POT TAB [Concomitant]
  6. PARICALCITOL CAP [Concomitant]
  7. CHLORTHALID TAB [Concomitant]
  8. ZYTIGA [Concomitant]
     Active Substance: ABIRATERONE ACETATE
  9. ATORVASTATIN TAB [Concomitant]
  10. VITAMIN D [Concomitant]
     Active Substance: CHOLECALCIFEROL
  11. LANTUS SOLOSTAR [Concomitant]
     Active Substance: INSULIN GLARGINE
  12. ZYTIGA [Suspect]
     Active Substance: ABIRATERONE ACETATE
     Indication: PROSTATE CANCER
     Route: 048
     Dates: start: 201403
  13. BONE DENSITY TAB [Concomitant]
  14. METOPROL TAR TAB [Concomitant]

REACTIONS (2)
  - Transient ischaemic attack [None]
  - Cerebrovascular accident [None]

NARRATIVE: CASE EVENT DATE: 20150302
